FAERS Safety Report 9837702 (Version 2)
Quarter: 2014Q2

REPORT INFORMATION
  Report Type: Spontaneous
  Country: US (occurrence: US)
  Receive Date: 20140123
  Receipt Date: 20140409
  Transmission Date: 20141212
  Serious: Yes (Hospitalization)
  Sender: FDA-Public Use
  Company Number: US-SA-2014SA007198

PATIENT
  Age: 72 Year
  Sex: Female
  Weight: 54 kg

DRUGS (5)
  1. HECTOROL [Suspect]
     Indication: HYPERPARATHYROIDISM SECONDARY
     Route: 042
     Dates: start: 20131226
  2. HECTOROL [Suspect]
     Indication: HYPERPARATHYROIDISM SECONDARY
     Route: 042
     Dates: end: 20140106
  3. VENOFER [Concomitant]
     Route: 042
  4. EPOGEN [Concomitant]
     Indication: ANAEMIA
     Dosage: DOSE:11000 UNIT(S)
     Route: 042
     Dates: start: 20131226
  5. HEPARIN SODIUM [Concomitant]
     Indication: ANTICOAGULANT THERAPY
     Dosage: FREQUENCY: Q TREATMENT DOSE:2000 UNIT(S)
     Route: 040
     Dates: start: 20121226

REACTIONS (10)
  - Choking [Recovered/Resolved]
  - Hypotonia [Recovered/Resolved]
  - Unresponsive to stimuli [Recovered/Resolved]
  - Respiratory arrest [Recovered/Resolved]
  - Hypopnoea [Recovered/Resolved]
  - Aggression [Recovered/Resolved]
  - Confusional state [Recovered/Resolved]
  - Vomiting [Recovered/Resolved]
  - Unresponsive to stimuli [Unknown]
  - Respiratory arrest [Unknown]
